FAERS Safety Report 4468356-1 (Version None)
Quarter: 2004Q4

REPORT INFORMATION
  Report Type: 
  Country: None (occurrence: None)
  Receive Date: 20041006
  Receipt Date: 20040923
  Transmission Date: 20050328
  Serious: Yes (Other)
  Sender: FDA-Public Use
  Company Number: 2004069355

PATIENT
  Age: 34 Year
  Sex: Female
  Weight: 63.5036 kg

DRUGS (1)
  1. UNISOM SLEEPGELS (DIPHENHYDRAMINE) [Suspect]
     Indication: INSOMNIA
     Dosage: 2-4 DAILY EVERYDAY, ORAL
     Route: 048
     Dates: start: 20000101

REACTIONS (2)
  - AFFECTIVE DISORDER [None]
  - INSOMNIA [None]
